FAERS Safety Report 19580136 (Version 1)
Quarter: 2021Q3

REPORT INFORMATION
  Report Type: Spontaneous
  Country: CA (occurrence: CA)
  Receive Date: 20210720
  Receipt Date: 20210720
  Transmission Date: 20211014
  Serious: Yes (Other)
  Sender: FDA-Public Use
  Company Number: CA-JNJFOC-20210734714

PATIENT
  Age: 41 Year
  Sex: Male
  Weight: 136 kg

DRUGS (1)
  1. INFLIXIMAB, RECOMBINANT [Suspect]
     Active Substance: INFLIXIMAB
     Indication: CROHN^S DISEASE
     Route: 042

REACTIONS (5)
  - Hypertension [Unknown]
  - Weight decreased [Unknown]
  - Off label use [Unknown]
  - Exposure to SARS-CoV-2 [Unknown]
  - Intentional product use issue [Unknown]
